FAERS Safety Report 14797393 (Version 1)
Quarter: 2018Q2

REPORT INFORMATION
  Report Type: Spontaneous
  Country: US (occurrence: US)
  Receive Date: 20180424
  Receipt Date: 20180424
  Transmission Date: 20180711
  Serious: No
  Sender: FDA-Public Use
  Company Number: US-TEVA-763690ACC

PATIENT
  Sex: Male

DRUGS (11)
  1. FAMOTIDINE. [Suspect]
     Active Substance: FAMOTIDINE
  2. ZETIA [Concomitant]
     Active Substance: EZETIMIBE
  3. METFORMIN [Concomitant]
     Active Substance: METFORMIN HYDROCHLORIDE
  4. METOPROLOL ER [Concomitant]
     Active Substance: METOPROLOL SUCCINATE
  5. CLONIDINE. [Concomitant]
     Active Substance: CLONIDINE
  6. LORATADINE. [Concomitant]
     Active Substance: LORATADINE
  7. SYNTHROID [Concomitant]
     Active Substance: LEVOTHYROXINE SODIUM
  8. CRESTOR [Concomitant]
     Active Substance: ROSUVASTATIN CALCIUM
  9. LISINOPRIL. [Concomitant]
     Active Substance: LISINOPRIL
  10. PANTOPRAZOLE [Concomitant]
     Active Substance: PANTOPRAZOLE
  11. ASPIRIN. [Concomitant]
     Active Substance: ASPIRIN

REACTIONS (3)
  - Product substitution issue [Unknown]
  - Drug hypersensitivity [Unknown]
  - Erythromelalgia [Not Recovered/Not Resolved]

NARRATIVE: CASE EVENT DATE: 20170225
